FAERS Safety Report 5139803-7 (Version None)
Quarter: 2006Q4

REPORT INFORMATION
  Report Type: 
  Country: None (occurrence: None)
  Receive Date: 20061025
  Receipt Date: 20060426
  Transmission Date: 20070319
  Serious: Yes (Death)
  Sender: FDA-Public Use
  Company Number: S06-USA-04381-01

PATIENT
  Age: 58 Year
  Sex: Female

DRUGS (4)
  1. LEXAPRO [Suspect]
     Indication: MAJOR DEPRESSION
     Dosage: 10 MG PO
     Route: 048
  2. LEXAPRO [Suspect]
     Indication: MAJOR DEPRESSION
     Dosage: 5 MG PO
     Route: 048
     Dates: start: 20021119
  3. LEXAPRO [Suspect]
     Indication: MAJOR DEPRESSION
     Dosage: 10 MG PO
     Route: 048
     Dates: start: 20030211, end: 20030425
  4. LORAZEPAM [Concomitant]

REACTIONS (10)
  - AGITATION [None]
  - ANXIETY [None]
  - COMPLETED SUICIDE [None]
  - DYSPHAGIA [None]
  - GUN SHOT WOUND [None]
  - INSOMNIA [None]
  - IRRITABILITY [None]
  - RASH [None]
  - SELF-INJURIOUS IDEATION [None]
  - SUICIDAL IDEATION [None]
